FAERS Safety Report 23061314 (Version 1)
Quarter: 2023Q4

REPORT INFORMATION
  Report Type: Spontaneous
  Country: CA (occurrence: CA)
  Receive Date: 20231013
  Receipt Date: 20231013
  Transmission Date: 20240110
  Serious: Yes (Other)
  Sender: FDA-Public Use
  Company Number: CA-TEVA-2023-CA-2933683

PATIENT
  Age: 65 Year
  Sex: Female
  Weight: 108 kg

DRUGS (1)
  1. METHOTREXATE SODIUM [Suspect]
     Active Substance: METHOTREXATE SODIUM
     Indication: Product used for unknown indication
     Route: 065

REACTIONS (4)
  - Arthralgia [Unknown]
  - Disease progression [Unknown]
  - Nausea [Unknown]
  - Liver function test increased [Unknown]
